FAERS Safety Report 8583261 (Version 4)
Quarter: 2013Q1

REPORT INFORMATION
  Report Type: Spontaneous
  Country: US (occurrence: US)
  Receive Date: 20120529
  Receipt Date: 20130328
  Transmission Date: 20140127
  Serious: Yes (Congenital Anomaly)
  Sender: FDA-Public Use
  Company Number: US-JNJFOC-20120518202

PATIENT
  Age: 0 Year
  Sex: Male

DRUGS (3)
  1. TYLENOL EXTRA  STRENGTH [Suspect]
     Indication: BACK PAIN
     Route: 064
  2. TYLENOL EXTRA  STRENGTH [Suspect]
     Indication: HEADACHE
     Route: 064
  3. TYLENOL  3 [Suspect]
     Indication: BACK PAIN
     Route: 064

REACTIONS (3)
  - Talipes [Unknown]
  - Foetal exposure during pregnancy [Unknown]
  - Haemorrhage in pregnancy [None]
